FAERS Safety Report 7389164-8 (Version None)
Quarter: 2011Q1

REPORT INFORMATION
  Report Type: 
  Country: None (occurrence: None)
  Receive Date: 20110329
  Receipt Date: 20110329
  Transmission Date: 20110831
  Serious: No
  Sender: FDA-Public Use
  Company Number: None

PATIENT
  Age: 77 Year
  Sex: Female
  Weight: 63.5036 kg

DRUGS (1)
  1. DORZOLAMIDE HYDROCHLORIDE/TIMOLOL MALEATE [Suspect]
     Indication: GLAUCOMA
     Dosage: 1 DROP EACH EYE 2XS DAILY BOTH EYES
     Dates: start: 20101201, end: 20110101

REACTIONS (6)
  - PRURITUS [None]
  - URTICARIA [None]
  - OCULAR HYPERAEMIA [None]
  - EYELID OEDEMA [None]
  - LACRIMATION INCREASED [None]
  - EYE PRURITUS [None]
